FAERS Safety Report 8812244 (Version 1)
Quarter: 2012Q4

REPORT INFORMATION
  Report Type: Spontaneous
  Country: GB (occurrence: None)
  Receive Date: 20120925
  Receipt Date: 20120925
  Transmission Date: 20130627
  Serious: Yes (Hospitalization)
  Sender: FDA-Public Use
  Company Number: GER/UKI/12/0025939

PATIENT
  Age: 50 Year

DRUGS (13)
  1. OMEPRAZOLE (OMEPRAZOLE) [Suspect]
     Indication: DRUG USE FOR UNKNOWN INDICATION
     Route: 048
     Dates: start: 20120801
  2. SPIRONOLACTONE [Concomitant]
  3. SIMVASTATIN (SIMVASTATIN) [Concomitant]
  4. BUMETANIDE (BUMETANIDE) [Concomitant]
  5. ASPIRIN (ACETYLSALICYLIC ACID) [Concomitant]
  6. BISOPROLOL (BISOPROLOL) [Concomitant]
  7. DIGOXIN (DIGOXIN) [Concomitant]
  8. LACTULOSE (LACTULOSE) [Concomitant]
  9. METFORMIN (METFORMIN) [Concomitant]
  10. MIRTAZEPINE (MIRTAZEPINE) [Concomitant]
  11. PARACETAMOL (PARACETAMOL) [Concomitant]
  12. RAMIPRIL (RAMIPRIL) [Concomitant]
  13. THIAMINE (THIAMINE) [Concomitant]

REACTIONS (2)
  - Chapped lips [None]
  - Lip pain [None]
